FAERS Safety Report 6089561-7 (Version None)
Quarter: 2009Q1

REPORT INFORMATION
  Report Type: 
  Country: None (occurrence: None)
  Receive Date: 20090220
  Receipt Date: 20090220
  Transmission Date: 20090719
  Serious: Yes (Other)
  Sender: FDA-Public Use
  Company Number: None

PATIENT
  Age: 41 Year
  Sex: Female

DRUGS (8)
  1. WELLBUTRIN SR [Suspect]
     Indication: MAJOR DEPRESSION
     Dosage: 100MG BID
     Dates: start: 20080401
  2. ZOLOFT [Concomitant]
  3. ACYCLOVIR [Concomitant]
  4. FIORICET [Concomitant]
  5. CELLCEPT [Concomitant]
  6. DAPSONE [Concomitant]
  7. PREDNISONE [Concomitant]
  8. KETOCONAZOLE [Concomitant]

REACTIONS (3)
  - ANXIETY [None]
  - DEPRESSION [None]
  - THERAPEUTIC RESPONSE UNEXPECTED WITH DRUG SUBSTITUTION [None]
